FAERS Safety Report 6043363-6 (Version None)
Quarter: 2009Q1

REPORT INFORMATION
  Report Type: 
  Country: None (occurrence: None)
  Receive Date: 20090120
  Receipt Date: 20090116
  Transmission Date: 20090719
  Serious: Yes (Other)
  Sender: FDA-Public Use
  Company Number: NL-JNJFOC-20090103467

PATIENT
  Sex: Female

DRUGS (6)
  1. DURAGESIC-100 [Suspect]
     Indication: ARTHRALGIA
     Route: 062
  2. DURAGESIC-100 [Suspect]
     Indication: BACK PAIN
     Route: 062
  3. OXYCODONE HCL [Suspect]
     Indication: ARTHRALGIA
     Route: 048
  4. OXYCODONE HCL [Suspect]
     Indication: BACK PAIN
     Route: 048
  5. LYRICA [Suspect]
     Indication: ARTHRALGIA
     Route: 048
  6. LYRICA [Suspect]
     Indication: BACK PAIN
     Route: 048

REACTIONS (1)
  - RETINITIS [None]
